FAERS Safety Report 12248061 (Version 3)
Quarter: 2017Q2

REPORT INFORMATION
  Report Type: Spontaneous
  Country: US (occurrence: US)
  Receive Date: 20160408
  Receipt Date: 20170509
  Transmission Date: 20170830
  Serious: Yes (Other)
  Sender: FDA-Public Use
  Company Number: US-GLENMARK PHARMACEUTICALS INC, USA.-2016GMK022506

PATIENT
  Age: 66 Year
  Sex: Male

DRUGS (9)
  1. SULFAMETHOXAZOLE/TRIMETHOPRIM [Suspect]
     Active Substance: SULFAMETHOXAZOLE\TRIMETHOPRIM
     Indication: PROPHYLAXIS
     Dosage: 1.9 MG/KG, QD (PROPHYLACTIC DOSE)
  2. RITUXIMAB [Suspect]
     Active Substance: RITUXIMAB
     Indication: B-CELL LYMPHOMA
     Dosage: UNK, 4 CYCLES CYCLICAL (R-CHOP)
     Route: 065
     Dates: start: 201302
  3. SULFAMETHOXAZOLE/TRIMETHOPRIM [Suspect]
     Active Substance: SULFAMETHOXAZOLE\TRIMETHOPRIM
     Indication: PNEUMOCYSTIS JIROVECII PNEUMONIA
     Dosage: UNK, BID FOR EIGHT DAYS (DOUBLE STRENGTH)
     Route: 065
     Dates: start: 201304
  4. ACICLOVIR [Suspect]
     Active Substance: ACYCLOVIR
     Indication: B-CELL LYMPHOMA
     Dosage: UNK, LONG-TERM USE
     Route: 065
  5. VINCRISTINE [Suspect]
     Active Substance: VINCRISTINE
     Indication: B-CELL LYMPHOMA
     Dosage: UNK, 4 CYCLES CYCLICAL (R-CHOP)
     Route: 065
     Dates: start: 201302
  6. CYCLOPHOSPHAMIDE. [Suspect]
     Active Substance: CYCLOPHOSPHAMIDE
     Indication: B-CELL LYMPHOMA
     Dosage: UNK, 4 CYCLES CYCLICAL (R-CHOP)
     Route: 065
     Dates: start: 201302
  7. HYDROXYDAUNORUBICIN [Suspect]
     Active Substance: DOXORUBICIN
     Indication: B-CELL LYMPHOMA
     Dosage: UNK, 4 CYCLES CYCLICAL (R-CHOP)
     Route: 065
     Dates: start: 201302
  8. SULFAMETHOXAZOLE/TRIMETHOPRIM [Suspect]
     Active Substance: SULFAMETHOXAZOLE\TRIMETHOPRIM
     Indication: URINARY TRACT INFECTION
     Dosage: 2 DF, EVERY 6 HOURS (15.6 MG/KG/DAY)
     Route: 048
  9. PREDNISOLONE. [Suspect]
     Active Substance: PREDNISOLONE
     Indication: B-CELL LYMPHOMA
     Dosage: UNK, 4 CYCLES CYCLICAL (R-CHOP)
     Route: 065
     Dates: start: 201302

REACTIONS (5)
  - Thrombocytopenia [Recovered/Resolved]
  - Asterixis [Recovered/Resolved]
  - Pneumocystis jirovecii pneumonia [Unknown]
  - Myoclonus [Recovered/Resolved]
  - Postural tremor [Recovered/Resolved]
